FAERS Safety Report 19727994 (Version 1)
Quarter: 2021Q3

REPORT INFORMATION
  Report Type: Spontaneous
  Country: IN (occurrence: IN)
  Receive Date: 20210820
  Receipt Date: 20210820
  Transmission Date: 20211014
  Serious: Yes (Hospitalization)
  Sender: FDA-Public Use
  Company Number: IN-MYLANLABS-2021M1053842

PATIENT
  Age: 3 Decade
  Sex: Male
  Weight: 42 kg

DRUGS (3)
  1. TACROLIMUS. [Suspect]
     Active Substance: TACROLIMUS
     Indication: IMMUNOSUPPRESSANT DRUG THERAPY
     Dosage: UNK
     Route: 065
  2. MYCOPHENOLATE MOFETIL. [Suspect]
     Active Substance: MYCOPHENOLATE MOFETIL
     Indication: IMMUNOSUPPRESSANT DRUG THERAPY
     Dosage: UNK
     Route: 065
  3. AMPHOTERICIN B. [Suspect]
     Active Substance: AMPHOTERICIN B
     Indication: HISTOPLASMOSIS
     Dosage: TOTAL DOSE OF 210 MG
     Route: 042

REACTIONS (5)
  - Urinary tract infection [Recovered/Resolved]
  - Histoplasmosis [Recovering/Resolving]
  - Weight decreased [Recovering/Resolving]
  - Pseudomonas infection [Recovered/Resolved]
  - Pancytopenia [Recovered/Resolved]
